FAERS Safety Report 5394443-X (Version None)
Quarter: 2007Q3

REPORT INFORMATION
  Report Type: 
  Country: None (occurrence: None)
  Receive Date: 20070723
  Receipt Date: 20070615
  Transmission Date: 20080115
  Serious: No
  Sender: FDA-Public Use
  Company Number: US-AMGEN-US225310

PATIENT
  Sex: Male
  Weight: 95.8 kg

DRUGS (10)
  1. VECTIBIX [Suspect]
     Indication: COLORECTAL CANCER
     Route: 042
     Dates: start: 20070503, end: 20070508
  2. AVASTIN [Concomitant]
  3. PRINIVIL [Concomitant]
     Route: 065
  4. NORVASC [Concomitant]
     Route: 065
  5. ALLOPURINOL [Concomitant]
     Route: 065
  6. NEURONTIN [Concomitant]
     Route: 065
  7. LIPITOR [Concomitant]
     Route: 065
  8. AMARYL [Concomitant]
     Route: 065
  9. SYNTHROID [Concomitant]
     Route: 065
  10. VICODIN [Concomitant]
     Route: 065

REACTIONS (3)
  - PURPURA [None]
  - RASH [None]
  - SCAB [None]
